FAERS Safety Report 8847787 (Version 2)
Quarter: 2012Q4

REPORT INFORMATION
  Report Type: Report from Study
  Country: US (occurrence: US)
  Receive Date: 20121018
  Receipt Date: 20121107
  Transmission Date: 20130627
  Serious: Yes (Other)
  Sender: FDA-Public Use
  Company Number: US-CELGENEUS-163-21880-12101773

PATIENT
  Age: 80 Year
  Sex: Male
  Weight: 82.5 kg

DRUGS (7)
  1. REVLIMID [Suspect]
     Indication: MULTIPLE MYELOMA
     Dosage: 7.5 Milligram
     Route: 048
     Dates: start: 20101123
  2. REVLIMID [Suspect]
     Dosage: 10 Milligram
     Route: 048
     Dates: start: 20120801, end: 20120803
  3. MELPHALAN [Suspect]
     Indication: MULTIPLE MYELOMA
     Dosage: 5 milligram/sq. meter
     Route: 048
     Dates: start: 20101123
  4. PREDNISONE [Suspect]
     Indication: MULTIPLE MYELOMA
     Dosage: 100 Milligram
     Route: 048
     Dates: start: 20101123
  5. ENTERIC COATED ASPIRIN [Concomitant]
     Indication: DRUG USE FOR UNKNOWN INDICATION
     Dosage: 325 Milligram
     Route: 048
     Dates: start: 20101123
  6. NEULASTA [Concomitant]
     Indication: SUPPORTIVE CARE
     Route: 065
  7. ZOMETA [Concomitant]
     Indication: SUPPORTIVE CARE
     Route: 065

REACTIONS (1)
  - Lung carcinoma cell type unspecified stage II [Not Recovered/Not Resolved]
